FAERS Safety Report 9249410 (Version 3)
Quarter: 2013Q3

REPORT INFORMATION
  Report Type: Spontaneous
  Country: US (occurrence: US)
  Receive Date: 20130423
  Receipt Date: 20130813
  Transmission Date: 20140515
  Serious: Yes (Other)
  Sender: FDA-Public Use
  Company Number: US-GLAXOSMITHKLINE-A1017342A

PATIENT
  Age: 69 Year
  Sex: Female

DRUGS (11)
  1. PROMACTA [Suspect]
     Indication: PLATELET COUNT DECREASED
     Dosage: 50MG PER DAY
     Route: 048
     Dates: start: 20130111
  2. POTASSIUM [Concomitant]
  3. LOVASTATIN [Concomitant]
  4. WARFARIN [Concomitant]
  5. FUROSEMIDE [Concomitant]
  6. HCTZ/TRIAMTERENE [Concomitant]
  7. CALCIUM [Concomitant]
  8. AMLODIPINE + BENAZEPRIL [Concomitant]
  9. UNKNOWN [Concomitant]
  10. NEXIUM [Concomitant]
  11. NITROSTAT [Concomitant]

REACTIONS (12)
  - Platelet transfusion [Unknown]
  - Local swelling [Unknown]
  - Blood potassium decreased [Unknown]
  - Thrombosis [Unknown]
  - Dysphonia [Not Recovered/Not Resolved]
  - Dysgeusia [Unknown]
  - Decreased appetite [Unknown]
  - Diarrhoea [Not Recovered/Not Resolved]
  - Chest pain [Unknown]
  - Dysarthria [Unknown]
  - Hernia [Unknown]
  - Ulcer [Unknown]
